FAERS Safety Report 15236422 (Version 1)
Quarter: 2018Q3

REPORT INFORMATION
  Report Type: Spontaneous
  Country: US (occurrence: US)
  Receive Date: 20180803
  Receipt Date: 20180803
  Transmission Date: 20181010
  Serious: No
  Sender: FDA-Public Use
  Company Number: US-ASTRAZENECA-2018SE91150

PATIENT
  Age: 19584 Day
  Sex: Male
  Weight: 83.9 kg

DRUGS (2)
  1. ELIQUIS [Concomitant]
     Active Substance: APIXABAN
     Route: 048
  2. SYMBICORT [Suspect]
     Active Substance: BUDESONIDE\FORMOTEROL FUMARATE DIHYDRATE
     Indication: ASTHMA
     Dosage: 160/4.5 MCG 2 INHALATIONS TWICE A DAY
     Route: 055
     Dates: start: 201803

REACTIONS (5)
  - Dry mouth [Unknown]
  - Tongue discolouration [Unknown]
  - Cough [Unknown]
  - Throat irritation [Unknown]
  - Dysgeusia [Unknown]

NARRATIVE: CASE EVENT DATE: 20180709
